FAERS Safety Report 5709654-0 (Version None)
Quarter: 2008Q2

REPORT INFORMATION
  Report Type: 
  Country: None (occurrence: None)
  Receive Date: 20080418
  Receipt Date: 20080414
  Transmission Date: 20081010
  Serious: Yes (Life-Threatening)
  Sender: FDA-Public Use
  Company Number: B0517068A

PATIENT
  Age: 26 Year
  Sex: Male
  Weight: 95 kg

DRUGS (1)
  1. ZINACEF [Suspect]
     Route: 042
     Dates: start: 20080402, end: 20080407

REACTIONS (5)
  - HYPERHIDROSIS [None]
  - HYPOTONIA [None]
  - PULSE PRESSURE DECREASED [None]
  - SYNCOPE [None]
  - TACHYCARDIA [None]
